FAERS Safety Report 8800414 (Version 2)
Quarter: 2015Q1

REPORT INFORMATION
  Report Type: Report from Study
  Country: US (occurrence: US)
  Receive Date: 20120921
  Receipt Date: 20150309
  Transmission Date: 20150721
  Serious: Yes (Death, Hospitalization)
  Sender: FDA-Public Use
  Company Number: US-ROCHE-1103399

PATIENT
  Sex: Male

DRUGS (30)
  1. MEGACE [Concomitant]
     Active Substance: MEGESTROL ACETATE
     Route: 065
  2. LACTULOSE. [Concomitant]
     Active Substance: LACTULOSE
     Route: 065
  3. MORPHINE SULFATE. [Concomitant]
     Active Substance: MORPHINE SULFATE
     Route: 065
  4. RITALIN [Concomitant]
     Active Substance: METHYLPHENIDATE HYDROCHLORIDE
     Route: 065
  5. AZITHROMYCIN [Concomitant]
     Active Substance: AZITHROMYCIN ANHYDROUS
  6. AVASTIN [Suspect]
     Active Substance: BEVACIZUMAB
     Indication: MALIGNANT URINARY TRACT NEOPLASM
     Route: 042
     Dates: start: 20080509
  7. DILAUDID [Suspect]
     Active Substance: HYDROMORPHONE HYDROCHLORIDE
     Indication: PRODUCT USED FOR UNKNOWN INDICATION
     Route: 065
  8. MORPHINE SULFATE. [Concomitant]
     Active Substance: MORPHINE SULFATE
     Route: 065
  9. SENNA [Concomitant]
     Active Substance: SENNA LEAF\SENNOSIDES\SENNOSIDES A AND B
     Route: 048
  10. VICODIN [Concomitant]
     Active Substance: ACETAMINOPHEN\HYDROCODONE BITARTRATE
     Route: 048
  11. ZOSYN [Concomitant]
     Active Substance: PIPERACILLIN SODIUM\TAZOBACTAM SODIUM
  12. LOVENOX [Concomitant]
     Active Substance: ENOXAPARIN SODIUM
     Route: 058
  13. AVASTIN [Suspect]
     Active Substance: BEVACIZUMAB
     Indication: LUNG NEOPLASM MALIGNANT
  14. POTASSIUM CHLORIDE. [Concomitant]
     Active Substance: POTASSIUM CHLORIDE
     Route: 065
  15. ACETAMINOPHEN. [Concomitant]
     Active Substance: ACETAMINOPHEN
     Route: 048
  16. REMERON [Concomitant]
     Active Substance: MIRTAZAPINE
     Route: 065
  17. RITALIN [Concomitant]
     Active Substance: METHYLPHENIDATE HYDROCHLORIDE
     Route: 048
  18. TEMSIROLIMUS [Concomitant]
     Active Substance: TEMSIROLIMUS
     Route: 042
  19. ALLOPURINOL. [Concomitant]
     Active Substance: ALLOPURINOL
     Route: 065
  20. DEXAMETHASONE. [Concomitant]
     Active Substance: DEXAMETHASONE
     Route: 065
  21. ATROVENT [Concomitant]
     Active Substance: IPRATROPIUM BROMIDE
  22. MORPHINE SULFATE. [Concomitant]
     Active Substance: MORPHINE SULFATE
     Route: 048
  23. REGLAN [Concomitant]
     Active Substance: METOCLOPRAMIDE HYDROCHLORIDE
     Dosage: BEFORE MEAL
     Route: 065
  24. REMERON [Concomitant]
     Active Substance: MIRTAZAPINE
     Route: 048
  25. MIRALAX [Concomitant]
     Active Substance: POLYETHYLENE GLYCOL 3350
     Route: 048
  26. SPIRONOLACTONE. [Concomitant]
     Active Substance: SPIRONOLACTONE
     Route: 065
  27. TRICOR (UNITED STATES) [Concomitant]
  28. SENOKOT [Concomitant]
     Active Substance: SENNOSIDES
  29. DIFLUCAN [Concomitant]
     Active Substance: FLUCONAZOLE
     Route: 065
  30. DIPHENHYDRAMINE [Concomitant]
     Active Substance: DIPHENHYDRAMINE
     Route: 042

REACTIONS (33)
  - Pyrexia [Recovered/Resolved]
  - Decreased appetite [Recovered/Resolved]
  - Metastases to bone [Unknown]
  - Skin mass [Unknown]
  - Ecchymosis [Unknown]
  - Pleural effusion [Unknown]
  - Off label use [Unknown]
  - Blood uric acid increased [Unknown]
  - Rash erythematous [Unknown]
  - Skin atrophy [Unknown]
  - Blood glucose increased [Unknown]
  - Mental status changes [Recovered/Resolved]
  - Hip fracture [Unknown]
  - Constipation [Recovered/Resolved]
  - Oedema peripheral [Unknown]
  - Failure to thrive [Unknown]
  - Death [Fatal]
  - Wound complication [Unknown]
  - Nausea [Unknown]
  - Weight decreased [Unknown]
  - Hypertriglyceridaemia [Unknown]
  - Spinal cord compression [Unknown]
  - Neuropathy peripheral [Unknown]
  - Muscular weakness [Unknown]
  - Decreased appetite [Unknown]
  - Vomiting [Unknown]
  - Confusional state [Unknown]
  - Metastases to spine [Unknown]
  - Cachexia [Unknown]
  - Fatigue [Unknown]
  - Tachycardia [Unknown]
  - Diarrhoea [Unknown]
  - Hypoglycaemia [Unknown]
